FAERS Safety Report 7683700-X (Version None)
Quarter: 2011Q3

REPORT INFORMATION
  Report Type: 
  Country: None (occurrence: None)
  Receive Date: 20110815
  Receipt Date: 20110808
  Transmission Date: 20111222
  Serious: Yes (Hospitalization, Other)
  Sender: FDA-Public Use
  Company Number: CA-B.I. PHARMACEUTICALS,INC./RIDGEFIELD-2011-CN-00833CN

PATIENT
  Age: 72 Year
  Sex: Female

DRUGS (3)
  1. DILTIAZEM CD [Concomitant]
     Dosage: 240 MG
  2. PRADAXA [Suspect]
     Indication: ATRIAL FIBRILLATION
     Dosage: 300 MG
     Dates: start: 20110201
  3. ATENOLOL [Concomitant]
     Dosage: 50 MG

REACTIONS (4)
  - ISCHAEMIC STROKE [None]
  - PULMONARY EMBOLISM [None]
  - DYSARTHRIA [None]
  - DEEP VEIN THROMBOSIS [None]
